FAERS Safety Report 13342112 (Version 1)
Quarter: 2017Q1

REPORT INFORMATION
  Report Type: Spontaneous
  Country: US (occurrence: US)
  Receive Date: 20170316
  Receipt Date: 20170316
  Transmission Date: 20170428
  Serious: No
  Sender: FDA-Public Use
  Company Number: None

PATIENT
  Age: 68 Year
  Sex: Female
  Weight: 90.8 kg

DRUGS (9)
  1. SIMVASTATIN. [Concomitant]
     Active Substance: SIMVASTATIN
  2. TIZANIDINE. [Concomitant]
     Active Substance: TIZANIDINE
  3. VITAMIN D3 [Concomitant]
     Active Substance: CHOLECALCIFEROL
  4. DULOXETINE. [Concomitant]
     Active Substance: DULOXETINE
  5. ABILIFY [Suspect]
     Active Substance: ARIPIPRAZOLE
     Indication: DEPRESSION
     Dosage: 1/2 PILL
     Route: 048
     Dates: start: 2006
  6. PROPRANLOL [Concomitant]
  7. LEVOTHYROXINE. [Concomitant]
     Active Substance: LEVOTHYROXINE
  8. TRIAMTERNE [Concomitant]
  9. CELECOXIB. [Concomitant]
     Active Substance: CELECOXIB

REACTIONS (2)
  - Economic problem [None]
  - Abnormal behaviour [None]

NARRATIVE: CASE EVENT DATE: 2008
